FAERS Safety Report 15663826 (Version 2)
Quarter: 2019Q1

REPORT INFORMATION
  Report Type: Spontaneous
  Country: US (occurrence: US)
  Receive Date: 20181128
  Receipt Date: 20190109
  Transmission Date: 20190417
  Serious: No
  Sender: FDA-Public Use
  Company Number: US-ASTRAZENECA-2018SF48494

PATIENT
  Sex: Female

DRUGS (1)
  1. BEVESPI AEROSPHERE [Suspect]
     Active Substance: FORMOTEROL FUMARATE\GLYCOPYRROLATE
     Indication: CHRONIC OBSTRUCTIVE PULMONARY DISEASE
     Dosage: 9/4.8 MCG., 2 PUFFS TWICE A DAY
     Route: 055
     Dates: start: 201810

REACTIONS (8)
  - Device issue [Not Recovered/Not Resolved]
  - Speech disorder [Not Recovered/Not Resolved]
  - Sleep deficit [Not Recovered/Not Resolved]
  - Discomfort [Not Recovered/Not Resolved]
  - Product dose omission [Not Recovered/Not Resolved]
  - Dyspnoea [Not Recovered/Not Resolved]
  - Confusional state [Not Recovered/Not Resolved]
  - Drug ineffective [Not Recovered/Not Resolved]
